FAERS Safety Report 9172871 (Version 1)
Quarter: 2012Q4

REPORT INFORMATION
  Report Type: 
  Country: US (occurrence: US)
  Receive Date: 20120911
  Receipt Date: 20120911
  Transmission Date: 20130627
  Serious: Yes (Other)
  Sender: FDA-Public Use
  Company Number: US-JUTA-2012-15691

PATIENT
  Age: 60 Year
  Sex: Female

DRUGS (13)
  1. CARBOPLATIN (WATSON LABORATORIES) [Suspect]
     Indication: OVARIAN CANCER
     Dosage: q 4 weeks
     Route: 042
  2. GEMCITABINE [Suspect]
     Indication: OVARIAN CANCER
     Dosage: UNK
     Route: 065
  3. LETROZOLE [Suspect]
     Indication: OVARIAN CANCER
     Route: 065
  4. TAMOXIFEN CITRATE (UNKNOWN) [Suspect]
     Indication: OVARIAN CANCER
     Dosage: UNK
     Route: 065
  5. INTERFERON [Suspect]
     Indication: OVARIAN CANCER
     Route: 065
  6. FILGRASTIM [Suspect]
     Indication: OVARIAN CANCER
     Route: 065
  7. LIPOSOMAL DOXORUBICIN HYDROCHLORIDE [Suspect]
     Indication: OVARIAN CANCER
     Route: 065
  8. BEVACIZUMAB [Suspect]
     Indication: OVARIAN CANCER
     Route: 065
  9. CYCLOPHOSPHAMIDE [Suspect]
     Indication: OVARIAN CANCER
     Route: 065
  10. TOPOTECAN [Suspect]
     Indication: OVARIAN CANCER
     Route: 065
  11. PACLITAXEL [Suspect]
     Indication: OVARIAN CANCER
     Route: 065
  12. DOCETAXEL [Suspect]
     Indication: OVARIAN CANCER
  13. TRIENTINE [Suspect]
     Indication: OVARIAN CANCER
     Dosage: 500 mg, qid
     Route: 048

REACTIONS (2)
  - Sideroblastic anaemia [Unknown]
  - Vaginal haemorrhage [None]
